FAERS Safety Report 25026283 (Version 1)
Quarter: 2025Q1

REPORT INFORMATION
  Report Type: Spontaneous
  Country: US (occurrence: US)
  Receive Date: 20250301
  Receipt Date: 20250301
  Transmission Date: 20250409
  Serious: No
  Sender: ELI LILLY AND COMPANY
  Company Number: US-ELI_LILLY_AND_COMPANY-US202502002516

PATIENT
  Age: 81 Year
  Sex: Male

DRUGS (2)
  1. KISUNLA [Suspect]
     Active Substance: DONANEMAB-AZBT
     Indication: Product used for unknown indication
     Route: 042
     Dates: start: 20241218
  2. KISUNLA [Suspect]
     Active Substance: DONANEMAB-AZBT
     Route: 042
     Dates: start: 20250203

REACTIONS (3)
  - Lip swelling [Recovered/Resolved]
  - Lip swelling [Unknown]
  - Infusion related reaction [Unknown]

NARRATIVE: CASE EVENT DATE: 20241231
